FAERS Safety Report 6286331-1 (Version None)
Quarter: 2009Q3

REPORT INFORMATION
  Report Type: 
  Country: None (occurrence: None)
  Receive Date: 20090728
  Receipt Date: 20090611
  Transmission Date: 20100115
  Serious: No
  Sender: FDA-Public Use
  Company Number: US-TYCO HEALTHCARE/MALLINCKRODT-T200901186

PATIENT
  Sex: Female
  Weight: 79.365 kg

DRUGS (2)
  1. ACETAMINOPHEN AND HYDROCODONE BITARTRATE [Suspect]
     Indication: BACK PAIN
     Dosage: 1 TAB BID OR TID
     Route: 048
     Dates: start: 20090301
  2. ACETAMINOPHEN AND HYDROCODONE BITARTRATE [Suspect]
     Indication: INTERVERTEBRAL DISC DEGENERATION

REACTIONS (2)
  - DRUG INEFFECTIVE [None]
  - HEADACHE [None]
